FAERS Safety Report 10170074 (Version 1)
Quarter: 2014Q2

REPORT INFORMATION
  Report Type: Spontaneous
  Country: FR (occurrence: FR)
  Receive Date: 20140513
  Receipt Date: 20140513
  Transmission Date: 20141212
  Serious: Yes (Other)
  Sender: FDA-Public Use
  Company Number: FR-BANPHARM-20142640

PATIENT
  Age: 17 Year
  Sex: Female

DRUGS (2)
  1. IBUPROFEN UNKNOWN PRODUCT [Suspect]
     Indication: PATELLOFEMORAL PAIN SYNDROME
     Dosage: 400 MG QID,
     Route: 048
     Dates: start: 201302
  2. MIRTAZAPINE [Concomitant]
     Indication: DEPRESSION

REACTIONS (1)
  - Dependence [Unknown]
